FAERS Safety Report 15428164 (Version 1)
Quarter: 2018Q3

REPORT INFORMATION
  Report Type: Spontaneous
  Country: US (occurrence: US)
  Receive Date: 20180926
  Receipt Date: 20180926
  Transmission Date: 20181010
  Serious: Yes (Other)
  Sender: FDA-Public Use
  Company Number: US-009507513-1809USA008543

PATIENT
  Sex: Male

DRUGS (7)
  1. XELODA [Concomitant]
     Active Substance: CAPECITABINE
  2. VITAMIN D [Concomitant]
     Active Substance: CHOLECALCIFEROL
  3. ZOFRAN [Concomitant]
     Active Substance: ONDANSETRON HYDROCHLORIDE
  4. HYDROCHLOROTHIAZIDE (+) LOSARTAN POTASSIUM [Concomitant]
     Active Substance: HYDROCHLOROTHIAZIDE\LOSARTAN POTASSIUM
  5. TEMODAR [Suspect]
     Active Substance: TEMOZOLOMIDE
     Indication: PANCREATIC NEUROENDOCRINE TUMOUR
     Dosage: STRENGTH 100MG, 4 TABLETS DAILY
     Route: 048
     Dates: start: 201801
  6. PERCOCET [Concomitant]
     Active Substance: ACETAMINOPHEN\OXYCODONE HYDROCHLORIDE
     Dosage: UNK
  7. ALLOPURINOL. [Concomitant]
     Active Substance: ALLOPURINOL

REACTIONS (5)
  - Therapeutic response unexpected [Unknown]
  - Product use in unapproved indication [Unknown]
  - Deafness [Not Recovered/Not Resolved]
  - Tinnitus [Not Recovered/Not Resolved]
  - Nausea [Not Recovered/Not Resolved]

NARRATIVE: CASE EVENT DATE: 2018
